FAERS Safety Report 10575489 (Version 1)
Quarter: 2014Q4

REPORT INFORMATION
  Report Type: Spontaneous
  Country: US (occurrence: US)
  Receive Date: 20141111
  Receipt Date: 20141111
  Transmission Date: 20150529
  Serious: Yes (Other)
  Sender: FDA-Public Use
  Company Number: US-RB-069871-14

PATIENT
  Sex: Male

DRUGS (1)
  1. CLEARASIL DAILY CLEAR HYDRA-BLAST PADS [Suspect]
     Active Substance: SALICYLIC ACID
     Indication: PRODUCT USED FOR UNKNOWN INDICATION
     Dosage: UNKNOWN
     Route: 065

REACTIONS (5)
  - Swelling face [Unknown]
  - Erythema [Unknown]
  - Dyspnoea [Unknown]
  - Swollen tongue [Unknown]
  - Hypersensitivity [Unknown]
